FAERS Safety Report 17289764 (Version 1)
Quarter: 2020Q1

REPORT INFORMATION
  Report Type: Spontaneous
  Country: IT (occurrence: IT)
  Receive Date: 20200120
  Receipt Date: 20200120
  Transmission Date: 20200409
  Serious: Yes (Other)
  Sender: FDA-Public Use
  Company Number: IT-BAUSCH-BL-2020-001597

PATIENT
  Age: 51 Year
  Sex: Male

DRUGS (6)
  1. DICLOFENAC [Suspect]
     Active Substance: DICLOFENAC
     Indication: PRODUCT USED FOR UNKNOWN INDICATION
     Route: 065
     Dates: end: 20190318
  2. ZURAMPIC [Suspect]
     Active Substance: LESINURAD
     Indication: GOUTY ARTHRITIS
     Route: 048
     Dates: start: 20190305, end: 20190318
  3. COLCHICINE. [Concomitant]
     Active Substance: COLCHICINE
     Dosage: UNK, 1 OT, QD (UNK, 1/DAY)
     Route: 065
     Dates: end: 20190318
  4. FEBUXOSTAT. [Concomitant]
     Active Substance: FEBUXOSTAT
     Indication: GOUTY ARTHRITIS
     Route: 065
  5. COLCHICINE. [Concomitant]
     Active Substance: COLCHICINE
     Indication: PRODUCT USED FOR UNKNOWN INDICATION
     Route: 065
  6. FENOFIBRATE. [Concomitant]
     Active Substance: FENOFIBRATE
     Indication: PRODUCT USED FOR UNKNOWN INDICATION
     Route: 065
     Dates: start: 20190305, end: 20190318

REACTIONS (7)
  - Malaise [Recovered/Resolved]
  - Pain [Recovered/Resolved]
  - Abdominal pain [Recovered/Resolved]
  - Nausea [Recovered/Resolved]
  - Acute kidney injury [Recovered/Resolved]
  - Flank pain [Recovered/Resolved]
  - Blood creatinine increased [Recovered/Resolved]
